FAERS Safety Report 8343354-6 (Version None)
Quarter: 2012Q2

REPORT INFORMATION
  Report Type: 
  Country: None (occurrence: None)
  Receive Date: 20120508
  Receipt Date: 20120426
  Transmission Date: 20120825
  Serious: Yes (Death, Hospitalization)
  Sender: FDA-Public Use
  Company Number: FR-BRISTOL-MYERS SQUIBB COMPANY-16558868

PATIENT
  Age: 79 Year
  Sex: Male

DRUGS (9)
  1. RAMIPRIL [Concomitant]
  2. OMEPRAZOLE [Concomitant]
  3. CARVEDILOL [Concomitant]
  4. ALDACTONE [Concomitant]
  5. COUMADIN [Suspect]
     Indication: ATRIAL FIBRILLATION
     Route: 048
     Dates: start: 20120123
  6. ESCITALOPRAM [Suspect]
     Route: 048
  7. ALPRAZOLAM [Suspect]
     Route: 048
  8. ATORVASTATIN [Concomitant]
  9. FUROSEMIDE [Concomitant]

REACTIONS (6)
  - DEATH [None]
  - CARDIAC FAILURE [None]
  - ENCEPHALOPATHY [None]
  - URINARY RETENTION [None]
  - CONFUSIONAL STATE [None]
  - DISORIENTATION [None]
